FAERS Safety Report 5129977-6 (Version None)
Quarter: 2006Q4

REPORT INFORMATION
  Report Type: 
  Country: None (occurrence: None)
  Receive Date: 20061013
  Receipt Date: 20050201
  Transmission Date: 20070319
  Serious: Yes (Other)
  Sender: FDA-Public Use
  Company Number: 2005024398

PATIENT
  Age: 68 Year
  Sex: Male

DRUGS (17)
  1. PREDNISOLONE [Suspect]
     Indication: BACTERIAL INFECTION
     Dosage: 10 MG (10 MG, 1 IN 1 D), ORAL
     Route: 048
  2. PREDNISOLONE [Suspect]
     Indication: BRONCHITIS CHRONIC
     Dosage: 10 MG (10 MG, 1 IN 1 D), ORAL
     Route: 048
  3. PREDNISOLONE [Suspect]
     Indication: CHRONIC OBSTRUCTIVE PULMONARY DISEASE
     Dosage: 10 MG (10 MG, 1 IN 1 D), ORAL
     Route: 048
  4. LEVOFLOXACIN [Suspect]
     Indication: BACTERIAL INFECTION
     Dosage: 500 MG (250 MG, 2 IN 1 D), ORAL
     Route: 048
     Dates: start: 20040922, end: 20041008
  5. LEVOFLOXACIN [Suspect]
     Indication: BRONCHITIS CHRONIC
     Dosage: 500 MG (250 MG, 2 IN 1 D), ORAL
     Route: 048
     Dates: start: 20040922, end: 20041008
  6. LEVOFLOXACIN [Suspect]
     Indication: CHRONIC OBSTRUCTIVE PULMONARY DISEASE
     Dosage: 500 MG (250 MG, 2 IN 1 D), ORAL
     Route: 048
     Dates: start: 20040922, end: 20041008
  7. TIOTROPIUM BROMIDE (TIOTROPIUM BROMIDE) [Concomitant]
  8. ACETAMINOPHEN [Concomitant]
  9. SALBUTAMOL (SALBUTAMOL) [Concomitant]
  10. FUROSEMIDE [Concomitant]
  11. MORPHINE SULFATE [Concomitant]
  12. SPIRONOLACTONE [Concomitant]
  13. LACTULOSE [Concomitant]
  14. ACETYLCYSTEINE [Concomitant]
  15. BICALUTAMIDE [Concomitant]
  16. MORPHINE [Concomitant]
  17. SERETIDE MITE (FLUTICASONE PROPIONATE, SALMETEROL XINAFOATE) [Concomitant]

REACTIONS (2)
  - TENDON RUPTURE [None]
  - TENDONITIS [None]
